FAERS Safety Report 14042759 (Version 1)
Quarter: 2017Q4

REPORT INFORMATION
  Report Type: Spontaneous
  Country: US (occurrence: US)
  Receive Date: 20171004
  Receipt Date: 20171004
  Transmission Date: 20180321
  Serious: No
  Sender: FDA-Public Use
  Company Number: US-INDIVIOR LIMITED-INDV-096119-2016

PATIENT
  Sex: Female

DRUGS (4)
  1. NICOTINE. [Concomitant]
     Active Substance: NICOTINE
     Indication: NICOTINE DEPENDENCE
     Dosage: 20 CIGARETTES DAILY
     Route: 055
  2. SUBOXONE [Suspect]
     Active Substance: BUPRENORPHINE HYDROCHLORIDE\NALOXONE HYDROCHLORIDE
     Indication: DRUG USE DISORDER
     Dosage: 12 MG DAILY
     Route: 060
  3. ANALGESICS [Suspect]
     Active Substance: UNSPECIFIED INGREDIENT
     Indication: PRODUCT USED FOR UNKNOWN INDICATION
     Dosage: UNK
     Route: 065
     Dates: start: 20160620, end: 201607
  4. SUBOXONE [Suspect]
     Active Substance: BUPRENORPHINE HYDROCHLORIDE\NALOXONE HYDROCHLORIDE
     Dosage: 1 MG DAILY
     Route: 060
     Dates: end: 20160620

REACTIONS (5)
  - Intentional underdose [Recovered/Resolved]
  - Perinatal depression [Recovering/Resolving]
  - Product preparation error [Recovered/Resolved]
  - Maternal exposure during pregnancy [Recovered/Resolved]
  - Suppressed lactation [Recovered/Resolved]

NARRATIVE: CASE EVENT DATE: 201509
